FAERS Safety Report 8595827-9 (Version None)
Quarter: 2012Q3

REPORT INFORMATION
  Report Type: 
  Country: None (occurrence: None)
  Receive Date: 20120807
  Receipt Date: 20120807
  Transmission Date: 20120928
  Serious: Yes (Death)
  Sender: FDA-Public Use
  Company Number: None

PATIENT
  Sex: Female

DRUGS (1)
  1. HEPARIN SODIUM [Suspect]
     Indication: THROMBOSIS PROPHYLAXIS
     Dosage: 5000 UNITS ONCE IA
     Route: 013
     Dates: start: 20120716

REACTIONS (6)
  - PROCEDURAL COMPLICATION [None]
  - DYSARTHRIA [None]
  - HAEMORRHAGE [None]
  - MUSCULAR WEAKNESS [None]
  - MOVEMENT DISORDER [None]
  - VIITH NERVE PARALYSIS [None]
